FAERS Safety Report 8712496 (Version 2)
Quarter: 2012Q4

REPORT INFORMATION
  Report Type: 
  Country: MX (occurrence: MX)
  Receive Date: 20120808
  Receipt Date: 20120830
  Transmission Date: 20130627
  Serious: Yes (Death, Hospitalization)
  Sender: FDA-Public Use
  Company Number: PHHY2012MX067886

PATIENT
  Age: 85 Year
  Sex: Female

DRUGS (2)
  1. EXELON PATCH [Suspect]
     Indication: DEMENTIA ALZHEIMER^S TYPE
     Dosage: 1 patch (4.6 mg) daily
     Route: 062
     Dates: start: 2011, end: 20120710
  2. OXYGEN THERAPY [Concomitant]
     Dosage: UNK UKN, UNK
     Dates: start: 2007

REACTIONS (4)
  - Respiratory arrest [Fatal]
  - Chronic obstructive pulmonary disease [Fatal]
  - Concomitant disease progression [Fatal]
  - Dyspnoea [Unknown]
